FAERS Safety Report 25224760 (Version 1)
Quarter: 2025Q2

REPORT INFORMATION
  Report Type: Spontaneous
  Country: CA (occurrence: CA)
  Receive Date: 20250422
  Receipt Date: 20250422
  Transmission Date: 20250717
  Serious: Yes (Life-Threatening, Hospitalization)
  Sender: ACCORD
  Company Number: None

PATIENT
  Age: 62 Year
  Sex: Female
  Weight: 120 kg

DRUGS (27)
  1. DAPTOMYCIN [Suspect]
     Active Substance: DAPTOMYCIN
     Indication: Arthritis bacterial
     Route: 042
  2. ALLOPURINOL [Concomitant]
     Active Substance: ALLOPURINOL
  3. ASPIRIN [Concomitant]
     Active Substance: ASPIRIN
  4. BETAMETHASONE VALERATE [Concomitant]
     Active Substance: BETAMETHASONE VALERATE
  5. CALCIUM\CHOLECALCIFEROL [Concomitant]
     Active Substance: CALCIUM\CHOLECALCIFEROL
  6. CANDESARTAN [Concomitant]
     Active Substance: CANDESARTAN
  7. CETIRIZINE [Concomitant]
     Active Substance: CETIRIZINE HYDROCHLORIDE
  8. COLCHICINE [Concomitant]
     Active Substance: COLCHICINE
  9. EPREX [Concomitant]
     Active Substance: ERYTHROPOIETIN
     Route: 042
  10. EVENING PRIMROSE OIL\HERBALS [Concomitant]
     Active Substance: EVENING PRIMROSE OIL\HERBALS
  11. FERROUS FUMARATE [Concomitant]
     Active Substance: FERROUS FUMARATE
  12. FISH OIL [Concomitant]
     Active Substance: FISH OIL
  13. FUROSEMIDE [Concomitant]
     Active Substance: FUROSEMIDE
  14. EMPAGLIFLOZIN [Concomitant]
     Active Substance: EMPAGLIFLOZIN
  15. IVABRADINE HYDROCHLORIDE [Concomitant]
     Active Substance: IVABRADINE HYDROCHLORIDE
     Route: 048
  16. LANSOPRAZOLE [Concomitant]
     Active Substance: LANSOPRAZOLE
  17. METOPROLOL [Concomitant]
     Active Substance: METOPROLOL
     Route: 058
  18. SEMAGLUTIDE [Concomitant]
     Active Substance: SEMAGLUTIDE
  19. ROSUVASTATIN [Concomitant]
     Active Substance: ROSUVASTATIN
  20. ALBUTEROL [Concomitant]
     Active Substance: ALBUTEROL
  21. SUCRALFATE [Concomitant]
     Active Substance: SUCRALFATE
  22. SYMBICORT [Concomitant]
     Active Substance: BUDESONIDE\FORMOTEROL FUMARATE DIHYDRATE
  23. INSULIN DEGLUDEC [Concomitant]
     Active Substance: INSULIN DEGLUDEC
  24. INSULIN ASPART [Concomitant]
     Active Substance: INSULIN ASPART
     Route: 042
  25. HERBALS\TURMERIC [Concomitant]
     Active Substance: HERBALS\TURMERIC
  26. VITAMIN B12 [Concomitant]
     Active Substance: CYANOCOBALAMIN
  27. ZINC [Concomitant]
     Active Substance: ZINC

REACTIONS (5)
  - Dyspnoea [Recovering/Resolving]
  - Lung consolidation [Recovering/Resolving]
  - Pyrexia [Recovering/Resolving]
  - Oxygen therapy [Recovering/Resolving]
  - Pneumonitis [Recovering/Resolving]
